FAERS Safety Report 8489729-6 (Version None)
Quarter: 2012Q3

REPORT INFORMATION
  Report Type: 
  Country: None (occurrence: None)
  Receive Date: 20120705
  Receipt Date: 20120628
  Transmission Date: 20120928
  Serious: Yes (Hospitalization)
  Sender: FDA-Public Use
  Company Number: FR-GLAXOSMITHKLINE-B0811075A

PATIENT
  Sex: Female
  Weight: 2.7 kg

DRUGS (1)
  1. LAMICTAL [Suspect]
     Indication: PRODUCT USED FOR UNKNOWN INDICATION
     Dosage: 50MG PER DAY
     Route: 064
     Dates: end: 20120610

REACTIONS (3)
  - JAUNDICE NEONATAL [None]
  - HEPATITIS ACUTE [None]
  - FOETAL EXPOSURE DURING PREGNANCY [None]
